FAERS Safety Report 6008550-1 (Version None)
Quarter: 2008Q4

REPORT INFORMATION
  Report Type: 
  Country: None (occurrence: None)
  Receive Date: 20081217
  Receipt Date: 20081210
  Transmission Date: 20090506
  Serious: Yes (Life-Threatening, Other)
  Sender: FDA-Public Use
  Company Number: IE-B.I. PHARMACEUTICALS,INC./RIDGEFIELD-2008-UK-01865UK

PATIENT
  Sex: Female

DRUGS (2)
  1. ALUPENT [Suspect]
     Indication: RESPIRATORY TRACT INFECTION
     Route: 048
     Dates: start: 20081001
  2. AUGMENTIN '125' [Concomitant]

REACTIONS (3)
  - ASTHENIA [None]
  - CIRCULATORY COLLAPSE [None]
  - HYPOTENSION [None]
